FAERS Safety Report 23732307 (Version 2)
Quarter: 2025Q2

REPORT INFORMATION
  Report Type: Report from Study
  Country: US (occurrence: US)
  Receive Date: 20240411
  Receipt Date: 20250414
  Transmission Date: 20250716
  Serious: Yes (Other)
  Sender: AURINIA PHARMACEUTICALS
  Company Number: US-OTSUKA PHARMACEUTICAL NETHERLANDS B.V.-AUR-005556

PATIENT
  Age: 46 Year
  Sex: Female

DRUGS (4)
  1. LUPKYNIS [Suspect]
     Active Substance: VOCLOSPORIN
     Indication: Lupus nephritis
     Dosage: 23.7 MILLIGRAM, BID
     Route: 048
     Dates: start: 20220421
  2. LUPKYNIS [Suspect]
     Active Substance: VOCLOSPORIN
     Dosage: 23.7 MILLIGRAM, BID
     Route: 048
  3. SPIRONOLACTONE [Suspect]
     Active Substance: SPIRONOLACTONE
     Indication: Product used for unknown indication
  4. SPIRONOLACTONE [Suspect]
     Active Substance: SPIRONOLACTONE
     Dosage: 25 MILLIGRAM, QD
     Route: 048

REACTIONS (12)
  - Urine protein/creatinine ratio increased [Recovering/Resolving]
  - Blood potassium increased [Unknown]
  - Diabetes mellitus inadequate control [Unknown]
  - Blood creatinine increased [Unknown]
  - Haemoglobin decreased [Unknown]
  - Decreased appetite [Unknown]
  - Glomerular filtration rate decreased [Unknown]
  - Protein urine present [Unknown]
  - Weight decreased [Unknown]
  - Complement factor C3 decreased [Unknown]
  - Stomach scan abnormal [Unknown]
  - Glycosylated haemoglobin increased [Unknown]

NARRATIVE: CASE EVENT DATE: 20231023
